FAERS Safety Report 4994185-6 (Version None)
Quarter: 2006Q2

REPORT INFORMATION
  Report Type: 
  Country: None (occurrence: None)
  Receive Date: 20060503
  Receipt Date: 20060417
  Transmission Date: 20061013
  Serious: Yes (Other)
  Sender: FDA-Public Use
  Company Number: GR200604002733

PATIENT
  Age: 37 Year
  Sex: Female

DRUGS (1)
  1. LADOSE [Suspect]
     Indication: DEPRESSION
     Dosage: 20 MG, WEEKLY (1/W), ORAL
     Route: 048
     Dates: start: 20000901, end: 20020701

REACTIONS (1)
  - MACULOPATHY [None]
